FAERS Safety Report 8775104 (Version 1)
Quarter: 2012Q4

REPORT INFORMATION
  Report Type: 
  Country: US (occurrence: US)
  Receive Date: 20120910
  Receipt Date: 20120910
  Transmission Date: 20130627
  Serious: Yes (Other)
  Sender: FDA-Public Use
  Company Number: US-JNJFOC-20110203445

PATIENT
  Age: 59 Year
  Sex: Female

DRUGS (5)
  1. DURAGESIC [Suspect]
     Indication: COLITIS ULCERATIVE
     Dosage: 2 x 50 ug/hr
     Route: 062
  2. DURAGESIC [Suspect]
     Indication: CROHN^S DISEASE
     Dosage: 2 x 50 ug/hr
     Route: 062
  3. DURAGESIC [Suspect]
     Indication: COLITIS ULCERATIVE
     Dosage: 2 x 50 ug/hr
     Route: 062
     Dates: end: 20120821
  4. DURAGESIC [Suspect]
     Indication: CROHN^S DISEASE
     Dosage: 2 x 50 ug/hr
     Route: 062
     Dates: end: 20120821
  5. MS CONTIN [Suspect]
     Indication: PRODUCT USED FOR UNKNOWN INDICATION
     Route: 065

REACTIONS (4)
  - Colitis ulcerative [Not Recovered/Not Resolved]
  - Crohn^s disease [Not Recovered/Not Resolved]
  - Drug ineffective [Unknown]
  - Product quality issue [Unknown]
